FAERS Safety Report 23755711 (Version 1)
Quarter: 2024Q2

REPORT INFORMATION
  Report Type: Spontaneous
  Country: US (occurrence: None)
  Receive Date: 20240417
  Receipt Date: 20240417
  Transmission Date: 20240717
  Serious: No
  Sender: FDA-Public Use
  Company Number: None

PATIENT
  Age: 64 Year
  Sex: Male

DRUGS (16)
  1. ADEMPAS [Suspect]
     Active Substance: RIOCIGUAT
     Indication: Pulmonary hypertension
     Dosage: FREQUENCY : 3 TIMES A DAY;?
     Route: 048
     Dates: start: 20231103, end: 20240329
  2. OPSUMIT [Concomitant]
     Active Substance: MACITENTAN
  3. SELEXIPAG [Concomitant]
     Active Substance: SELEXIPAG
  4. TRAZODONE [Concomitant]
     Active Substance: TRAZODONE HYDROCHLORIDE
  5. INSPRA [Concomitant]
     Active Substance: EPLERENONE
  6. ATORVASTATIN [Concomitant]
     Active Substance: ATORVASTATIN
  7. METOLAZONE [Concomitant]
  8. POTASSIUM CHLORIDE [Concomitant]
     Active Substance: POTASSIUM CHLORIDE
  9. TORSEMIDE [Concomitant]
  10. WARFARIN [Concomitant]
  11. ALLOPURINOL [Concomitant]
     Active Substance: ALLOPURINOL
  12. ACETAMINOPHEN [Concomitant]
  13. OMEPRAZOLE [Concomitant]
     Active Substance: OMEPRAZOLE
  14. cyclophenzaprine [Concomitant]
  15. jardinace [Concomitant]
  16. MAGOX [Concomitant]

REACTIONS (2)
  - Hypotension [None]
  - Therapy cessation [None]

NARRATIVE: CASE EVENT DATE: 20240327
